FAERS Safety Report 4991248-6 (Version None)
Quarter: 2006Q2

REPORT INFORMATION
  Report Type: 
  Country: None (occurrence: None)
  Receive Date: 20060428
  Receipt Date: 20060418
  Transmission Date: 20061013
  Serious: Yes (Hospitalization)
  Sender: FDA-Public Use
  Company Number: 2006BI004505

PATIENT
  Age: 42 Year
  Sex: Female

DRUGS (5)
  1. AVONEX [Suspect]
     Indication: MULTIPLE SCLEROSIS
     Dosage: 30 UG; QW; IM;  IM
     Route: 030
     Dates: start: 20030901, end: 20051201
  2. AVONEX [Suspect]
     Indication: MULTIPLE SCLEROSIS
     Dosage: 30 UG; QW; IM;  IM
     Route: 030
     Dates: start: 20060201
  3. ZOLOFT [Concomitant]
  4. PROVIGIL [Concomitant]
  5. KLONOPIN [Concomitant]

REACTIONS (3)
  - CONDITION AGGRAVATED [None]
  - HYSTERECTOMY [None]
  - MULTIPLE SCLEROSIS [None]
